FAERS Safety Report 11337013 (Version 6)
Quarter: 2016Q2

REPORT INFORMATION
  Report Type: Spontaneous
  Country: US (occurrence: US)
  Receive Date: 20150804
  Receipt Date: 20160526
  Transmission Date: 20160815
  Serious: Yes (Other)
  Sender: FDA-Public Use
  Company Number: US-PFIZER INC-2015246897

PATIENT
  Age: 67 Year
  Sex: Female
  Weight: 54 kg

DRUGS (4)
  1. IBUPROFEN. [Concomitant]
     Active Substance: IBUPROFEN
     Dosage: UNK
  2. SUTENT [Suspect]
     Active Substance: SUNITINIB MALATE
     Indication: RENAL CANCER STAGE IV
     Dosage: 50 MG, CYCLIC (28 DAYS ON/14 DAYS OFF)
     Dates: start: 20150701
  3. SUTENT [Suspect]
     Active Substance: SUNITINIB MALATE
     Dosage: 37.5 MG, CYCLIC (ONCE DAILY, 28 DAYS ON/14 DAYS OFF)
     Dates: start: 2015, end: 20160307
  4. LISINOPRIL. [Concomitant]
     Active Substance: LISINOPRIL
     Indication: BLOOD PRESSURE ABNORMAL
     Dosage: 10 MG, UNK

REACTIONS (18)
  - Loss of consciousness [Unknown]
  - Rash generalised [Unknown]
  - Fungal infection [Unknown]
  - Diarrhoea [Unknown]
  - Renal cancer stage IV [Unknown]
  - Decreased appetite [Unknown]
  - Weight decreased [Unknown]
  - Disease progression [Unknown]
  - Vomiting [Unknown]
  - Fatigue [Unknown]
  - Palmar-plantar erythrodysaesthesia syndrome [Unknown]
  - Dehydration [Unknown]
  - Fall [Unknown]
  - Yellow skin [Unknown]
  - Dyspepsia [Unknown]
  - Dizziness [Unknown]
  - Contusion [Unknown]
  - Blood pressure decreased [Unknown]
